FAERS Safety Report 21306008 (Version 3)
Quarter: 2022Q4

REPORT INFORMATION
  Report Type: Report from Study
  Country: CA (occurrence: CA)
  Receive Date: 20220908
  Receipt Date: 20221019
  Transmission Date: 20230113
  Serious: Yes (Hospitalization)
  Sender: FDA-Public Use
  Company Number: CA-JNJFOC-20220912324

PATIENT
  Age: 35 Year
  Sex: Male
  Weight: 55 kg

DRUGS (1)
  1. REMICADE [Suspect]
     Active Substance: INFLIXIMAB
     Indication: Crohn^s disease
     Dosage: LAST DOSE 10-AUG-2022
     Route: 041
     Dates: start: 20220728

REACTIONS (2)
  - Clostridium difficile infection [Recovering/Resolving]
  - Abscess intestinal [Unknown]

NARRATIVE: CASE EVENT DATE: 20220801
